FAERS Safety Report 24267714 (Version 1)
Quarter: 2024Q3

REPORT INFORMATION
  Report Type: Spontaneous
  Country: US (occurrence: None)
  Receive Date: 20240829
  Receipt Date: 20240829
  Transmission Date: 20241017
  Serious: No
  Sender: Public
  Company Number: None

PATIENT
  Sex: 0

DRUGS (1)
  1. LATANOPROST [Suspect]
     Active Substance: LATANOPROST

REACTIONS (2)
  - Drug ineffective [None]
  - Intraocular pressure increased [None]
